FAERS Safety Report 9314631 (Version 1)
Quarter: 2013Q2

REPORT INFORMATION
  Report Type: Report from Study
  Country: CA (occurrence: CA)
  Receive Date: 20130529
  Receipt Date: 20130529
  Transmission Date: 20140414
  Serious: Yes (Hospitalization, Other)
  Sender: FDA-Public Use
  Company Number: CA-JNJFOC-20130518061

PATIENT
  Age: 57 Year
  Sex: Male
  Weight: 101 kg

DRUGS (7)
  1. REMICADE [Suspect]
     Indication: PRODUCT USED FOR UNKNOWN INDICATION
     Route: 042
     Dates: start: 201206
  2. BISOPROLOL [Concomitant]
     Route: 065
  3. PREVACID [Concomitant]
     Route: 048
  4. COVERSYL [Concomitant]
     Route: 048
  5. ROSUVASTATIN [Concomitant]
     Route: 048
  6. ASA [Concomitant]
     Route: 048
  7. TICAGRELOR [Concomitant]
     Route: 048

REACTIONS (1)
  - Coronary artery occlusion [Unknown]
